FAERS Safety Report 7068096-9 (Version None)
Quarter: 2010Q4

REPORT INFORMATION
  Report Type: 
  Country: None (occurrence: None)
  Receive Date: 20101027
  Receipt Date: 20101027
  Transmission Date: 20110411
  Serious: Yes (Hospitalization)
  Sender: FDA-Public Use
  Company Number: None

PATIENT
  Age: 24 Year
  Sex: Female
  Weight: 70 kg

DRUGS (3)
  1. SAPHRIS [Suspect]
     Indication: BIPOLAR DISORDER
     Dosage: (4 DOSES)
     Dates: start: 20101022, end: 20101024
  2. CITALOPRAM HYDROBROMIDE [Concomitant]
  3. LOW-OGESTREL-21 [Concomitant]

REACTIONS (6)
  - DROOLING [None]
  - DYSARTHRIA [None]
  - OEDEMA MOUTH [None]
  - PHARYNGEAL OEDEMA [None]
  - SWELLING FACE [None]
  - TREMOR [None]
